FAERS Safety Report 5830672-6 (Version None)
Quarter: 2008Q3

REPORT INFORMATION
  Report Type: 
  Country: None (occurrence: None)
  Receive Date: 20080801
  Receipt Date: 20071001
  Transmission Date: 20090109
  Serious: No
  Sender: FDA-Public Use
  Company Number: US-BRISTOL-MYERS SQUIBB COMPANY-13924394

PATIENT
  Age: 73 Year
  Sex: Male
  Weight: 91 kg

DRUGS (4)
  1. WARFARIN SODIUM [Suspect]
     Indication: ARRHYTHMIA
     Dosage: WARFARIN SODIUM STARTED ON 09-AUG-2007. 5MGX4DAYS,7.5MGX3DAYS,5MGX6DAYS,7.5MGX3DAYS.
     Dates: start: 20070910
  2. POTASSIUM CHLORIDE [Concomitant]
  3. TRIAMTERENE AND HYDROCHLOROTHIAZIDE [Concomitant]
  4. AMIODARONE [Concomitant]

REACTIONS (2)
  - ARTHRALGIA [None]
  - BACK PAIN [None]
